FAERS Safety Report 23150352 (Version 3)
Quarter: 2023Q4

REPORT INFORMATION
  Report Type: Report from Study
  Country: NL (occurrence: NL)
  Receive Date: 20231106
  Receipt Date: 20231113
  Transmission Date: 20240109
  Serious: Yes (Death, Life-Threatening, Hospitalization)
  Sender: FDA-Public Use
  Company Number: NL-ABBVIE-4255932

PATIENT
  Sex: Male

DRUGS (8)
  1. CARBIDOPA\LEVODOPA [Suspect]
     Active Substance: CARBIDOPA\LEVODOPA
     Indication: Parkinson^s disease
     Dosage: MD: 10.0 ML, CD: 3.4ML/H, ED: 3.8 ML; CND: 1.0MLH; END 2.0ML
     Route: 050
     Dates: start: 20200608
  2. CARBIDOPA\LEVODOPA [Suspect]
     Active Substance: CARBIDOPA\LEVODOPA
     Dosage: THERAPY START DATE AND END DATE WAS 2023
     Route: 050
  3. CARBIDOPA\LEVODOPA [Suspect]
     Active Substance: CARBIDOPA\LEVODOPA
     Dosage: MD: 9.0 ML, CD: 3.2ML/H, ED: 2.0 ML; CND: 1.0MLH; END 2.0ML?THERAPY START DATE AND END DATE WAS 2...
     Route: 050
  4. CARBIDOPA\LEVODOPA [Suspect]
     Active Substance: CARBIDOPA\LEVODOPA
     Dosage: MD: 9.0 ML, CD: 3.9 ML/H, ED: 2.5 ML; END: 2.0 ML, CND: 2.5 ML/H?DURATION TEXT: REMAINS AT 24 HOURS
     Route: 050
     Dates: start: 20230720, end: 20231005
  5. CARBIDOPA\LEVODOPA [Suspect]
     Active Substance: CARBIDOPA\LEVODOPA
     Dosage: MD: 9.0 ML, CD: 3.9 ML/H, ED: 2.5 ML; END: 2.0 ML, CND: 2.5 ML/H?THERAPY END DATE WAS 2023
     Route: 050
     Dates: start: 20231005
  6. CARBIDOPA\LEVODOPA [Suspect]
     Active Substance: CARBIDOPA\LEVODOPA
     Dosage: MD: 9.0 ML, CD: 3.7 ML/H, ED: 2.5 ML; END: 2.0 ML, CND: 2.5 ML/H?DURATION TEXT: REMAINS AT 16 HOURS
     Route: 050
     Dates: start: 20230621, end: 20230720
  7. CARBIDOPA\LEVODOPA [Suspect]
     Active Substance: CARBIDOPA\LEVODOPA
     Dosage: MD: 10.0 ML, CD: 3.4ML/H, ED: 3.8 ML;?THERAPY START DATE AND END DATE WAS 2023
     Route: 050
  8. MOVICOLON [Concomitant]
     Active Substance: POLYETHYLENE GLYCOL 3350\POTASSIUM CHLORIDE\SODIUM BICARBONATE\SODIUM CHLORIDE
     Indication: Defaecation disorder
     Dosage: 1 SACHET

REACTIONS (30)
  - Death [Fatal]
  - Device issue [Unknown]
  - Apraxia [Not Recovered/Not Resolved]
  - Bowel movement irregularity [Not Recovered/Not Resolved]
  - Hallucination [Recovering/Resolving]
  - On and off phenomenon [Not Recovered/Not Resolved]
  - Hypersomnia [Not Recovered/Not Resolved]
  - Terminal state [Not Recovered/Not Resolved]
  - Device leakage [Unknown]
  - Delusion [Not Recovered/Not Resolved]
  - Dyschezia [Not Recovered/Not Resolved]
  - Unevaluable event [Not Recovered/Not Resolved]
  - Memory impairment [Not Recovered/Not Resolved]
  - Gait disturbance [Not Recovered/Not Resolved]
  - Tremor [Not Recovered/Not Resolved]
  - Bradykinesia [Not Recovered/Not Resolved]
  - Mobility decreased [Not Recovered/Not Resolved]
  - Dyskinesia [Recovered/Resolved]
  - Limb discomfort [Not Recovered/Not Resolved]
  - Muscle rigidity [Not Recovered/Not Resolved]
  - Freezing phenomenon [Not Recovered/Not Resolved]
  - Cognitive disorder [Not Recovered/Not Resolved]
  - Hypophagia [Not Recovered/Not Resolved]
  - Catheter placement [Unknown]
  - Discomfort [Recovering/Resolving]
  - Muscle spasms [Not Recovered/Not Resolved]
  - Restlessness [Recovering/Resolving]
  - Dyskinesia [Not Recovered/Not Resolved]
  - Fluid intake reduced [Not Recovered/Not Resolved]
  - Palliative care [Not Recovered/Not Resolved]

NARRATIVE: CASE EVENT DATE: 20230101
